FAERS Safety Report 25988391 (Version 1)
Quarter: 2025Q4

REPORT INFORMATION
  Report Type: Spontaneous
  Country: AU (occurrence: AU)
  Receive Date: 20251103
  Receipt Date: 20251103
  Transmission Date: 20260117
  Serious: Yes (Death, Other)
  Sender: AKESO BIOPHARMA CO., LTD.
  Company Number: AU-Akeso Biopharma Co., Ltd.-2187765

PATIENT
  Sex: Female

DRUGS (1)
  1. PENPULIMAB-KCQX [Suspect]
     Active Substance: PENPULIMAB-KCQX
     Indication: Ovarian clear cell carcinoma

REACTIONS (1)
  - Death [Fatal]
